FAERS Safety Report 21523795 (Version 6)
Quarter: 2023Q2

REPORT INFORMATION
  Report Type: Report from Study
  Country: US (occurrence: US)
  Receive Date: 20221029
  Receipt Date: 20230411
  Transmission Date: 20230721
  Serious: No
  Sender: FDA-Public Use
  Company Number: US-ABBVIE-4168537

PATIENT
  Age: 64 Year
  Sex: Male
  Weight: 96.615 kg

DRUGS (1)
  1. IMBRUVICA [Suspect]
     Active Substance: IBRUTINIB
     Indication: Chronic lymphocytic leukaemia
     Route: 048
     Dates: start: 20220624, end: 20221205

REACTIONS (3)
  - Renal impairment [Unknown]
  - Renal function test abnormal [Recovering/Resolving]
  - Increased tendency to bruise [Unknown]

NARRATIVE: CASE EVENT DATE: 20221101
